FAERS Safety Report 10907166 (Version 1)
Quarter: 2015Q1

REPORT INFORMATION
  Report Type: Spontaneous
  Country: US (occurrence: None)
  Receive Date: 20150309
  Receipt Date: 20150309
  Transmission Date: 20150721
  Serious: Yes (Disabling)
  Sender: FDA-Public Use
  Company Number: None

PATIENT
  Age: 61 Year
  Sex: Male
  Weight: 80.74 kg

DRUGS (6)
  1. FISH OIL [Concomitant]
     Active Substance: FISH OIL
  2. TOPROL XL [Concomitant]
     Active Substance: METOPROLOL SUCCINATE
  3. COENZYME Q10 [Concomitant]
     Active Substance: UBIDECARENONE
  4. LIPITOR [Concomitant]
     Active Substance: ATORVASTATIN CALCIUM
  5. LOTREL [Suspect]
     Active Substance: AMLODIPINE BESYLATE\BENAZEPRIL HYDROCHLORIDE
     Indication: HYPERTENSION
     Dates: start: 20130416, end: 20150305
  6. SAW PALMETTO [Concomitant]
     Active Substance: SAW PALMETTO

REACTIONS (7)
  - Mouth ulceration [None]
  - Oropharyngeal pain [None]
  - Gingival bleeding [None]
  - Rhinitis [None]
  - Lymphadenitis [None]
  - Cough [None]
  - Gingival hyperplasia [None]

NARRATIVE: CASE EVENT DATE: 20150303
